FAERS Safety Report 5067396-1 (Version None)
Quarter: 2006Q3

REPORT INFORMATION
  Report Type: 
  Country: None (occurrence: None)
  Receive Date: 20060727
  Receipt Date: 20060719
  Transmission Date: 20061208
  Serious: Yes (Other)
  Sender: FDA-Public Use
  Company Number: 227717

PATIENT
  Age: 71 Year
  Sex: Female

DRUGS (2)
  1. ACTIVASE [Suspect]
     Indication: ISCHAEMIC STROKE
     Dosage: 54 MG, SINGLE, INTRAVENOUS
     Route: 042
     Dates: start: 20060627, end: 20060627
  2. OMEPRAZOLE [Concomitant]

REACTIONS (3)
  - PNEUMONIA ASPIRATION [None]
  - RETROPERITONEAL HAEMATOMA [None]
  - SHOCK HAEMORRHAGIC [None]
